FAERS Safety Report 4501959-4 (Version None)
Quarter: 2004Q4

REPORT INFORMATION
  Report Type: 
  Country: None (occurrence: None)
  Receive Date: 20041115
  Receipt Date: 20041115
  Transmission Date: 20050328
  Serious: Yes (Hospitalization)
  Sender: FDA-Public Use
  Company Number: None

PATIENT
  Age: 86 Year
  Sex: Male
  Weight: 72.6 kg

DRUGS (12)
  1. TEMAZEPAM [Suspect]
  2. RANITIDINE [Concomitant]
  3. GABAPENTIN [Concomitant]
  4. DIGOXIN [Concomitant]
  5. FELODIPINE [Concomitant]
  6. SIMVASTATIN [Concomitant]
  7. DOCUSATE [Concomitant]
  8. TERAZOSIN HCL [Concomitant]
  9. ACETAMINOPHEN [Concomitant]
  10. LUBRICATING EYE DROPS [Concomitant]
  11. FOSINOPRIL SODIUM [Concomitant]
  12. SIMETHICONE [Concomitant]

REACTIONS (1)
  - FALL [None]
